APPROVED DRUG PRODUCT: HYDROCODONE BITARTRATE
Active Ingredient: HYDROCODONE BITARTRATE
Strength: 10MG
Dosage Form/Route: CAPSULE, EXTENDED RELEASE;ORAL
Application: A206986 | Product #001
Applicant: ALVOGEN INC
Approved: Jan 21, 2020 | RLD: No | RS: Yes | Type: RX